FAERS Safety Report 4604158-0 (Version None)
Quarter: 2005Q1

REPORT INFORMATION
  Report Type: 
  Country: None (occurrence: None)
  Receive Date: 20050308
  Receipt Date: 20050308
  Transmission Date: 20050727
  Serious: Yes (Hospitalization)
  Sender: FDA-Public Use
  Company Number: None

PATIENT
  Age: 58 Year
  Sex: Male
  Weight: 67.7 kg

DRUGS (3)
  1. ATENOLOL [Suspect]
     Indication: HYPERTENSION
     Dosage: 25 MG PO BID
     Route: 048
     Dates: start: 20040101, end: 20040901
  2. PRAZOSIN HCL [Suspect]
     Dosage: 4 MG PO BID
     Route: 048
     Dates: start: 20030601, end: 20040901
  3. LISINOPRIL [Suspect]
     Indication: HYPERTENSION
     Dosage: 40 MG PO QD
     Route: 048
     Dates: start: 20020312, end: 20040901

REACTIONS (2)
  - ORTHOSTATIC HYPOTENSION [None]
  - SYNCOPE [None]
